FAERS Safety Report 6576328-6 (Version None)
Quarter: 2010Q1

REPORT INFORMATION
  Report Type: 
  Country: None (occurrence: None)
  Receive Date: 20100210
  Receipt Date: 20100122
  Transmission Date: 20100710
  Serious: No
  Sender: FDA-Public Use
  Company Number: AU-JNJFOC-20091204983

PATIENT
  Sex: Female

DRUGS (9)
  1. DURAGESIC-100 [Suspect]
     Indication: ANALGESIC THERAPY
     Route: 062
  2. OXYNORM [Concomitant]
  3. SOMAC [Concomitant]
  4. WARFARIN SODIUM [Concomitant]
  5. PERINDOPRIL [Concomitant]
  6. KINSON [Concomitant]
  7. DILANTIN [Concomitant]
  8. COLOXYL/SENNA [Concomitant]
  9. DEXAMETHASONE [Concomitant]

REACTIONS (1)
  - INCORRECT DOSE ADMINISTERED [None]
